FAERS Safety Report 14375798 (Version 1)
Quarter: 2018Q1

REPORT INFORMATION
  Report Type: Spontaneous
  Country: US (occurrence: US)
  Receive Date: 20180111
  Receipt Date: 20180111
  Transmission Date: 20180509
  Serious: Yes (Hospitalization, Disabling)
  Sender: FDA-Public Use
  Company Number: None

PATIENT
  Sex: Female
  Weight: 14.4 kg

DRUGS (2)
  1. SENNA SYRUP [Concomitant]
     Active Substance: SENNOSIDES
  2. NULYTELY [Suspect]
     Active Substance: POLYETHYLENE GLYCOL 3350\POTASSIUM CHLORIDE\SODIUM BICARBONATE\SODIUM CHLORIDE
     Indication: CONSTIPATION
     Route: 048
     Dates: start: 20160101

REACTIONS (5)
  - Abnormal behaviour [None]
  - Aggression [None]
  - Autism spectrum disorder [None]
  - Vomiting [None]
  - Sensory disturbance [None]

NARRATIVE: CASE EVENT DATE: 20170610
